FAERS Safety Report 19759037 (Version 1)
Quarter: 2021Q3

REPORT INFORMATION
  Report Type: Spontaneous
  Country: US (occurrence: US)
  Receive Date: 20210827
  Receipt Date: 20210827
  Transmission Date: 20211014
  Serious: No
  Sender: FDA-Public Use
  Company Number: US-CELGENEUS-USA-20210805999

PATIENT
  Sex: Female
  Weight: 72.19 kg

DRUGS (1)
  1. REVLIMID [Suspect]
     Active Substance: LENALIDOMIDE
     Indication: FOLLICULAR LYMPHOMA
     Dosage: 20 MILLIGRAM
     Route: 048
     Dates: start: 20210724

REACTIONS (4)
  - Diarrhoea [Not Recovered/Not Resolved]
  - Vertigo [Not Recovered/Not Resolved]
  - Constipation [Not Recovered/Not Resolved]
  - Dry mouth [Not Recovered/Not Resolved]

NARRATIVE: CASE EVENT DATE: 2021
